FAERS Safety Report 9770098 (Version 2)
Quarter: 2013Q4

REPORT INFORMATION
  Report Type: Spontaneous
  Country: US (occurrence: US)
  Receive Date: 20131218
  Receipt Date: 20131218
  Transmission Date: 20140711
  Serious: No
  Sender: FDA-Public Use
  Company Number: US-VERTEX PHARMACEUTICALS INC-AE-2011-000929

PATIENT
  Age: 52 Year
  Sex: Female

DRUGS (5)
  1. INCIVEK [Suspect]
     Indication: HEPATITIS C
     Dates: start: 2011, end: 2011
  2. PEGASYS [Concomitant]
     Indication: HEPATITIS C
     Dates: end: 2011
  3. RIBAVIRIN [Concomitant]
     Indication: HEPATITIS C
     Dates: end: 2011
  4. HYZAAR [Concomitant]
  5. METOPROLOL [Concomitant]

REACTIONS (1)
  - Rash vesicular [Recovered/Resolved]
